FAERS Safety Report 5179225-6 (Version None)
Quarter: 2006Q4

REPORT INFORMATION
  Report Type: 
  Country: None (occurrence: None)
  Receive Date: 20061219
  Receipt Date: 20061211
  Transmission Date: 20070319
  Serious: Yes (Hospitalization)
  Sender: FDA-Public Use
  Company Number: 2006UW27367

PATIENT
  Age: 16 Year
  Sex: Female
  Weight: 45.4 kg

DRUGS (9)
  1. PULMICORT [Suspect]
     Indication: ASTHMA
     Route: 055
     Dates: start: 20061014, end: 20061029
  2. PULMICORT [Suspect]
     Route: 055
     Dates: start: 20061030, end: 20061126
  3. PULMICORT [Suspect]
     Route: 055
     Dates: start: 20061201
  4. METHYLPREDNISOLONE [Concomitant]
     Dates: start: 20061018, end: 20061025
  5. LORATADINE [Concomitant]
     Dates: end: 20061126
  6. LORATADINE [Concomitant]
     Dates: start: 20061201
  7. ALBUTEROL [Concomitant]
     Dosage: 2 PUFFS BID
     Dates: start: 20061014, end: 20061029
  8. ALBUTEROL [Concomitant]
     Dosage: 3 PUFFS BID
     Dates: start: 20061030, end: 20061126
  9. ALBUTEROL [Concomitant]
     Dates: start: 20061201

REACTIONS (3)
  - DEPRESSION [None]
  - DIZZINESS [None]
  - SUICIDAL IDEATION [None]
